FAERS Safety Report 9343878 (Version 1)
Quarter: 2013Q2

REPORT INFORMATION
  Report Type: Spontaneous
  Country: GB (occurrence: None)
  Receive Date: 20130610
  Receipt Date: 20130610
  Transmission Date: 20140414
  Serious: Yes (Other)
  Sender: FDA-Public Use
  Company Number: E2B_00000911

PATIENT
  Age: 74 Year
  Sex: Female

DRUGS (10)
  1. SIMVASTATIN (SIMVASTATIN) [Suspect]
     Indication: HYPERCHOLESTEROLAEMIA
     Dosage: 1 DOSAGE FORMS, 1 IN 1 D), ORAL
     Route: 048
  2. PRAVASTATIN [Suspect]
     Indication: HYPERCHOLESTEROLAEMIA
     Dosage: 1 DOSAGE FORMS (1 DOSAGE FORMS, 1 IN 1D) ORAL
     Route: 048
  3. BEZAFIBRATE [Suspect]
     Indication: HYPERCHOLESTEROLAEMIA
     Dosage: 400MG (400MG, 1 IN 1D) ORAL
     Route: 048
  4. ATORVASTATIN [Suspect]
     Indication: HYPERCHOLESTEROLAEMIA
     Dosage: 10MG (10MG, 1 IN 1D) ORAL
     Route: 048
  5. ATORVASTATIN [Suspect]
     Indication: HYPERCHOLESTEROLAEMIA
     Dosage: 1 DOSAGE FORMS, 1 IN 1D) ORAL
  6. LEVOTHYROXINE SODIUM ANHYDROUS [Concomitant]
  7. BISOPROLOL FUMARATE [Concomitant]
  8. BENDROFLUMETHIAZIDE [Concomitant]
  9. CLOPIDOGREL HYDROCHLORIDE [Concomitant]
  10. LOSARTAN POTASSIUM [Concomitant]

REACTIONS (3)
  - Myalgia [None]
  - Vision blurred [None]
  - Nausea [None]
